FAERS Safety Report 10766838 (Version 8)
Quarter: 2015Q3

REPORT INFORMATION
  Report Type: Spontaneous
  Country: HU (occurrence: HU)
  Receive Date: 20150205
  Receipt Date: 20150715
  Transmission Date: 20151125
  Serious: Yes (Hospitalization, Other)
  Sender: FDA-Public Use
  Company Number: HU-PFIZER INC-2015044965

PATIENT
  Age: 59 Year
  Sex: Female

DRUGS (8)
  1. SUTENT [Suspect]
     Active Substance: SUNITINIB MALATE
     Dosage: 50 MG, DAILY, 4TH CYCLE
     Route: 048
     Dates: start: 20150425, end: 20150520
  2. BONEFOS [Concomitant]
     Active Substance: CLODRONATE DISODIUM
     Indication: ARTHRALGIA
     Dosage: 2 TABLETS, DAILY
  3. SUTENT [Suspect]
     Active Substance: SUNITINIB MALATE
     Dosage: 50 MG, DAILY, 3RD CYCLE
     Route: 048
     Dates: start: 20150314
  4. IRON [Concomitant]
     Active Substance: IRON
     Dosage: UNK
     Route: 048
  5. VIDONORM [Concomitant]
     Indication: HYPERTENSION
  6. SUTENT [Suspect]
     Active Substance: SUNITINIB MALATE
     Indication: RENAL CANCER METASTATIC
     Dosage: 50 MG, DAILY 1ST CYCLE
     Route: 048
     Dates: start: 20141219
  7. BISOBLOCK [Concomitant]
     Active Substance: BISOPROLOL FUMARATE
     Indication: HYPERTENSION
  8. NOOTROPIL [Concomitant]
     Active Substance: PIRACETAM
     Indication: HEARING IMPAIRED
     Dosage: OCCASSIONALLY

REACTIONS (14)
  - Asthenia [Not Recovered/Not Resolved]
  - Orbital oedema [Recovered/Resolved]
  - Coma [Unknown]
  - Diarrhoea [Recovered/Resolved]
  - General physical health deterioration [Not Recovered/Not Resolved]
  - Peripheral swelling [Recovered/Resolved]
  - Disease progression [Unknown]
  - Renal cancer metastatic [Unknown]
  - Epistaxis [Recovered/Resolved]
  - Nausea [Unknown]
  - Vomiting [Unknown]
  - Decreased appetite [Not Recovered/Not Resolved]
  - Intracranial tumour haemorrhage [Unknown]
  - Lymphoedema [Recovered/Resolved]

NARRATIVE: CASE EVENT DATE: 201501
